FAERS Safety Report 5047928-X (Version None)
Quarter: 2006Q3

REPORT INFORMATION
  Report Type: 
  Country: None (occurrence: None)
  Receive Date: 20060710
  Receipt Date: 20060710
  Transmission Date: 20061208
  Serious: Yes (Other)
  Sender: FDA-Public Use
  Company Number: None

PATIENT
  Age: 55 Year
  Sex: Male
  Weight: 142.8831 kg

DRUGS (3)
  1. ICYHOT EXTRA STRENGTH CHATTEM, INC, BOX 2219 CHATTANOOGA TN, 37409-021 [Suspect]
     Indication: BACK PAIN
     Dosage: I USED A 1.2 INCH  ONCE TOP
     Dates: start: 20060701, end: 20060707
  2. ICYHOT EXTRA STRENGTH CHATTEM, INC, BOX 2219 CHATTANOOGA TN, 37409-021 [Suspect]
     Indication: INTERVERTEBRAL DISC DEGENERATION
     Dosage: I USED A 1.2 INCH  ONCE TOP
     Dates: start: 20060701, end: 20060707
  3. STEROID [Concomitant]

REACTIONS (7)
  - APPLICATION SITE PAIN [None]
  - APPLICATION SITE REACTION [None]
  - ERYTHEMA [None]
  - PAIN [None]
  - PANIC ATTACK [None]
  - SHOCK [None]
  - SKIN BURNING SENSATION [None]
